FAERS Safety Report 10050707 (Version 1)
Quarter: 2014Q2

REPORT INFORMATION
  Report Type: Spontaneous
  Country: US (occurrence: US)
  Receive Date: 20140401
  Receipt Date: 20140401
  Transmission Date: 20141212
  Serious: No
  Sender: FDA-Public Use
  Company Number: US-ASTRAZENECA-2013SE70793

PATIENT
  Age: 59 Year
  Sex: Female
  Weight: 72.6 kg

DRUGS (7)
  1. NEXIUM [Suspect]
     Indication: GASTROOESOPHAGEAL REFLUX DISEASE
     Route: 048
     Dates: start: 2003
  2. NEXIUM [Suspect]
     Indication: GASTROOESOPHAGEAL REFLUX DISEASE
     Route: 048
     Dates: start: 2012
  3. IMITREX [Concomitant]
     Indication: MIGRAINE
     Route: 048
  4. CALCIUM [Concomitant]
  5. VITAMIN D [Concomitant]
  6. GLUCOSAMINE [Concomitant]
  7. CORTISONE INJECTIONS [Concomitant]

REACTIONS (5)
  - Gastric ulcer [Unknown]
  - Weight increased [Unknown]
  - Arthralgia [Unknown]
  - Drug effect incomplete [Unknown]
  - Off label use [Unknown]
